FAERS Safety Report 16107687 (Version 1)
Quarter: 2019Q1

REPORT INFORMATION
  Report Type: Spontaneous
  Country: US (occurrence: US)
  Receive Date: 20190322
  Receipt Date: 20190322
  Transmission Date: 20190418
  Serious: Yes (Other)
  Sender: FDA-Public Use
  Company Number: US-BEUTLICH PHARMACEUTICALS, LLC-2064440

PATIENT
  Age: 51 Year
  Sex: Male

DRUGS (1)
  1. HURRICAINE TOPICAL ANESTHETIC LIQUID [Suspect]
     Active Substance: BENZOCAINE
     Indication: ECHOCARDIOGRAM
     Route: 048
     Dates: start: 20190107, end: 20190107

REACTIONS (1)
  - Methaemoglobinaemia [Recovered/Resolved]

NARRATIVE: CASE EVENT DATE: 20190107
